FAERS Safety Report 5985014-2 (Version None)
Quarter: 2008Q4

REPORT INFORMATION
  Report Type: 
  Country: None (occurrence: None)
  Receive Date: 20081201
  Receipt Date: 20081119
  Transmission Date: 20090506
  Serious: Yes (Hospitalization)
  Sender: FDA-Public Use
  Company Number: WSDF_00756

PATIENT
  Age: 65 Year
  Sex: Male
  Weight: 81.8 kg

DRUGS (8)
  1. WINRHO [Suspect]
     Indication: IDIOPATHIC THROMBOCYTOPENIC PURPURA
     Dosage: 51.2 UG/KG ONCE IV
     Route: 042
     Dates: start: 20080926, end: 20080926
  2. WINRHO [Suspect]
     Indication: IDIOPATHIC THROMBOCYTOPENIC PURPURA
     Dates: start: 20080924, end: 20080924
  3. PREDNISONE TAB [Concomitant]
  4. PLAQUENIL [Concomitant]
  5. LEVOXYL [Concomitant]
  6. OS-CAL [Concomitant]
  7. ZESTRIL [Concomitant]
  8. CLARITIN [Concomitant]

REACTIONS (4)
  - BLOOD UREA INCREASED [None]
  - HYPERTENSION [None]
  - INTRAVASCULAR HAEMOLYSIS [None]
  - PNEUMONIA BACTERIAL [None]
